FAERS Safety Report 8303823-1 (Version None)
Quarter: 2012Q2

REPORT INFORMATION
  Report Type: 
  Country: None (occurrence: None)
  Receive Date: 20120423
  Receipt Date: 20120417
  Transmission Date: 20120825
  Serious: Yes (Other)
  Sender: FDA-Public Use
  Company Number: PHHY2012AU002355

PATIENT
  Age: 29 Year
  Sex: Female

DRUGS (3)
  1. CLOZAPINE [Suspect]
     Dosage: 325 MG, DAILY
  2. CLOZAPINE [Suspect]
     Indication: SCHIZOPHRENIA, PARANOID TYPE
     Dosage: 500 MG, AT NIGHT
  3. AMISULPRIDE [Concomitant]
     Dosage: 200 MG, BID

REACTIONS (7)
  - FEELING ABNORMAL [None]
  - BUNDLE BRANCH BLOCK RIGHT [None]
  - SCHIZOPHRENIA [None]
  - POOR QUALITY SLEEP [None]
  - RESTLESS LEGS SYNDROME [None]
  - FEELING HOT [None]
  - ARTHRALGIA [None]
